FAERS Safety Report 21154248 (Version 1)
Quarter: 2022Q3

REPORT INFORMATION
  Report Type: Other
  Country: NG (occurrence: None)
  Receive Date: 20220801
  Receipt Date: 20220801
  Transmission Date: 20221026
  Serious: Yes (Death)
  Sender: FDA-Public Use
  Company Number: NG-ROCHE-3150757

PATIENT
  Sex: Female
  Weight: 57 kg

DRUGS (2)
  1. PERJETA [Suspect]
     Active Substance: PERTUZUMAB
     Indication: Breast cancer stage II
     Route: 042
     Dates: start: 20210210
  2. HERCEPTIN [Suspect]
     Active Substance: TRASTUZUMAB
     Indication: Breast cancer stage II
     Route: 041
     Dates: start: 20210210

REACTIONS (1)
  - Death [Fatal]
